FAERS Safety Report 14654532 (Version 2)
Quarter: 2018Q2

REPORT INFORMATION
  Report Type: Spontaneous
  Country: US (occurrence: US)
  Receive Date: 20180319
  Receipt Date: 20180508
  Transmission Date: 20180711
  Serious: No
  Sender: FDA-Public Use
  Company Number: US-CELLTRION INC.-2017US011534

PATIENT

DRUGS (3)
  1. INFLECTRA [Suspect]
     Active Substance: INFLIXIMAB-DYYB
     Dosage: 646.5 MG, EVERY 6 WEEKS
     Route: 065
     Dates: start: 20171113, end: 20171113
  2. INFLECTRA [Suspect]
     Active Substance: INFLIXIMAB-DYYB
     Indication: PSORIATIC ARTHROPATHY
     Dosage: 646.5 MG, EVERY 6 WEEKS
     Route: 065
     Dates: start: 20170830, end: 20170830
  3. INFLECTRA [Suspect]
     Active Substance: INFLIXIMAB-DYYB
     Dosage: 4 VIALS EVERY 4 WEEKS
     Route: 065

REACTIONS (3)
  - Inappropriate schedule of drug administration [Unknown]
  - Drug prescribing error [Unknown]
  - Incorrect dose administered [Unknown]
